FAERS Safety Report 23673494 (Version 1)
Quarter: 2024Q1

REPORT INFORMATION
  Report Type: Spontaneous
  Country: US (occurrence: US)
  Receive Date: 20240326
  Receipt Date: 20240326
  Transmission Date: 20240409
  Serious: No
  Sender: FDA-Public Use
  Company Number: US-Harrow Eye-2154801

PATIENT
  Sex: Female

DRUGS (2)
  1. TOBRADEX ST [Suspect]
     Active Substance: DEXAMETHASONE\TOBRAMYCIN
     Indication: Eye infection
     Route: 047
  2. LUMIFY [Concomitant]
     Active Substance: BRIMONIDINE TARTRATE

REACTIONS (2)
  - Vitreous floaters [Unknown]
  - Circumstance or information capable of leading to medication error [Unknown]
